FAERS Safety Report 5714308-0 (Version None)
Quarter: 2008Q2

REPORT INFORMATION
  Report Type: 
  Country: None (occurrence: None)
  Receive Date: 20080422
  Receipt Date: 20080422
  Transmission Date: 20081010
  Serious: Yes (Hospitalization)
  Sender: FDA-Public Use
  Company Number: None

PATIENT
  Age: 56 Year
  Sex: Male

DRUGS (1)
  1. CAPECITABINE [Suspect]
     Dosage: 1500 MG BID PO
     Route: 048
     Dates: start: 20080227, end: 20080306

REACTIONS (2)
  - CONSTIPATION [None]
  - SMALL INTESTINAL OBSTRUCTION [None]
